FAERS Safety Report 8578247 (Version 3)
Quarter: 2012Q4

REPORT INFORMATION
  Report Type: 
  Country: US (occurrence: US)
  Receive Date: 20120524
  Receipt Date: 20120829
  Transmission Date: 20130627
  Serious: Yes (Other)
  Sender: FDA-Public Use
  Company Number: US-ROCHE-1060380

PATIENT
  Sex: Female
  Weight: 69.01 kg

DRUGS (3)
  1. XELODA [Suspect]
     Indication: COLORECTAL CANCER
     Dosage: 2 weeks on/ 1 week off
  2. XELODA [Suspect]
     Dosage: continuously without break
  3. AVASTIN [Suspect]
     Indication: COLORECTAL CANCER
     Dosage: every third week
     Route: 042
     Dates: start: 201012

REACTIONS (4)
  - Carcinoembryonic antigen increased [Unknown]
  - Metastases to liver [Unknown]
  - Impaired healing [Unknown]
  - Drug resistance [Unknown]
